FAERS Safety Report 22000901 (Version 1)
Quarter: 2023Q1

REPORT INFORMATION
  Report Type: Spontaneous
  Country: US (occurrence: None)
  Receive Date: 20230215
  Receipt Date: 20230215
  Transmission Date: 20230418
  Serious: Yes (Hospitalization)
  Sender: FDA-Public Use
  Company Number: None

PATIENT
  Age: 75 Year
  Sex: Male

DRUGS (1)
  1. ABIRATERONE [Suspect]
     Active Substance: ABIRATERONE
     Dosage: FREQUENCY : DAILY;?
     Route: 048

REACTIONS (5)
  - Constipation [None]
  - Prostatic specific antigen increased [None]
  - Atrial fibrillation [None]
  - Blood urine present [None]
  - Bladder neoplasm surgery [None]

NARRATIVE: CASE EVENT DATE: 20230215
